FAERS Safety Report 10253350 (Version 1)
Quarter: 2014Q2

REPORT INFORMATION
  Report Type: Spontaneous
  Country: US (occurrence: US)
  Receive Date: 20140623
  Receipt Date: 20140623
  Transmission Date: 20141212
  Serious: No
  Sender: FDA-Public Use
  Company Number: US-SHIONOGI, INC-2014000400

PATIENT
  Age: 69 Year
  Sex: Female

DRUGS (2)
  1. OSPHENA [Suspect]
     Indication: VULVITIS
     Dosage: UNK, DAILY
     Route: 065
     Dates: start: 201308
  2. OSPHENA [Suspect]
     Indication: OFF LABEL USE
     Dosage: UNK, EVERY OTHER DAY
     Route: 065
     Dates: start: 201401, end: 2014

REACTIONS (4)
  - Off label use [Not Recovered/Not Resolved]
  - Medication error [Recovered/Resolved]
  - Therapeutic response changed [Not Recovered/Not Resolved]
  - No adverse event [Unknown]
